FAERS Safety Report 16311455 (Version 1)
Quarter: 2019Q2

REPORT INFORMATION
  Report Type: Spontaneous
  Country: IT (occurrence: IT)
  Receive Date: 20190514
  Receipt Date: 20190514
  Transmission Date: 20190711
  Serious: Yes (Hospitalization, Other)
  Sender: FDA-Public Use
  Company Number: IT-PFIZER INC-2019201492

PATIENT
  Age: 59 Year
  Sex: Male

DRUGS (20)
  1. RANEXA [Concomitant]
     Active Substance: RANOLAZINE
     Dosage: 2 DF, 1X/DAY
     Route: 065
  2. OMNIC [Concomitant]
     Active Substance: TAMSULOSIN HYDROCHLORIDE
     Dosage: 1 DF, 1X/DAY (DIE)
     Route: 065
  3. METFORMIN [Concomitant]
     Active Substance: METFORMIN HYDROCHLORIDE
     Dosage: 1 DF, 2X/DAY (AT LUNCH AND DINNER)
     Route: 065
  4. PANTORC [Concomitant]
     Active Substance: PANTOPRAZOLE SODIUM
     Dosage: 1 DF, (IN THE MORNING BEFORE BREAKFAST)
     Route: 065
  5. NORVASC [Concomitant]
     Active Substance: AMLODIPINE BESYLATE
     Dosage: 1 DF, 1X/DAY (IN THE AFTERNOON)
     Route: 065
  6. PREFOLIC [Concomitant]
     Active Substance: LEUCOVORIN CALCIUM
     Dosage: 1 DF, 1X/DAY  (IN THE MORNING)
     Route: 065
  7. DUOPLAVIN [Concomitant]
     Active Substance: ASPIRIN\CLOPIDOGREL
     Dosage: 1 DF, QD (AFTER LUNCH)
     Route: 065
  8. VALSARTAN SANDOZ [Suspect]
     Active Substance: VALSARTAN
     Dosage: 1 DF, 1X/DAY (IN THE MORNING)
  9. OMNIC [Concomitant]
     Active Substance: TAMSULOSIN HYDROCHLORIDE
     Dosage: 1 DF, 1X/DAY (IN THE EVENING)
     Route: 065
  10. CONGESCOR [Concomitant]
     Active Substance: BISOPROLOL
     Dosage: 3.75 MG, 1X/DAY (MORNING)
     Route: 065
  11. MICARDIS PLUS [Concomitant]
     Active Substance: HYDROCHLOROTHIAZIDE\TELMISARTAN
     Dosage: 1 DF, 1X/DAY (AT 8AM)
     Route: 065
  12. ATORVASTATIN CALCIUM. [Suspect]
     Active Substance: ATORVASTATIN CALCIUM
     Dosage: 1 DF, 1X/DAY (IN THE EVENING)
  13. ZETIA [Concomitant]
     Active Substance: EZETIMIBE
     Dosage: 1 DF, 1X/DAY (AFTER DINNER)
     Route: 065
  14. NORVASC [Concomitant]
     Active Substance: AMLODIPINE BESYLATE
     Dosage: 1 DF, 1X/DAY (AT 6 PM)
     Route: 065
  15. DEPONIT [Concomitant]
     Active Substance: NITROGLYCERIN
     Dosage: UNK (1 TDP TO BE APPLIED IN THE MORNING AND REMOVED IN THE EVENING)
     Route: 065
  16. PANTORC [Concomitant]
     Active Substance: PANTOPRAZOLE SODIUM
     Dosage: 1 DF, DIE
     Route: 065
  17. TAREG [Suspect]
     Active Substance: VALSARTAN
     Indication: HYPERTENSION
     Dosage: 1 DF, 1X/DAY (AFTER BREAKFAST)
     Route: 048
     Dates: start: 201605, end: 201806
  18. VALSARTAN SANDOZ [Suspect]
     Active Substance: VALSARTAN
     Indication: HYPERTENSION
     Dosage: UNK
     Dates: start: 201601
  19. CONGESCOR [Concomitant]
     Active Substance: BISOPROLOL
     Dosage: 2.5 MG, 1X/DAY
     Route: 065
  20. LACITONE [Concomitant]
     Dosage: 1 DF, 1X/DAY
     Route: 065

REACTIONS (9)
  - Myopathy [Unknown]
  - Chronic obstructive pulmonary disease [Unknown]
  - Vascular stent stenosis [Unknown]
  - Arteriosclerosis coronary artery [Unknown]
  - Ischaemic cardiomyopathy [Unknown]
  - Dyslipidaemia [Unknown]
  - Cognitive disorder [Unknown]
  - Gastric disorder [Unknown]
  - Benign prostatic hyperplasia [Unknown]
